FAERS Safety Report 25569251 (Version 1)
Quarter: 2025Q3

REPORT INFORMATION
  Report Type: Spontaneous
  Country: CA (occurrence: CA)
  Receive Date: 20250716
  Receipt Date: 20250716
  Transmission Date: 20251020
  Serious: Yes (Disabling)
  Sender: TEVA
  Company Number: CA-TEVA-VS-3351718

PATIENT
  Age: 91 Year
  Sex: Male
  Weight: 89 kg

DRUGS (1)
  1. SPIRONOLACTONE [Suspect]
     Active Substance: SPIRONOLACTONE
     Indication: Ejection fraction decreased
     Route: 048

REACTIONS (3)
  - Breast mass [Recovered/Resolved]
  - Breast pain [Recovered/Resolved]
  - Nipple pain [Recovered/Resolved]
